FAERS Safety Report 8709471 (Version 2)
Quarter: 2013Q1

REPORT INFORMATION
  Report Type: Spontaneous
  Country: US (occurrence: None)
  Receive Date: 20120720
  Receipt Date: 20120926
  Transmission Date: 20140127
  Serious: Yes (Hospitalization)
  Sender: FDA-Public Use
  Company Number: TPA2012A04362

PATIENT
  Age: 62 Year
  Sex: Female
  Weight: 87.7 kg

DRUGS (4)
  1. DEXLANSOPRAZOLE [Suspect]
     Indication: PROPHYLAXIS
     Dosage: 60 MG, 1 IN 1 D, ORAL
     Route: 048
     Dates: start: 20120214
  2. CALCIUM (CALCIUM) [Concomitant]
  3. VITAMIN D [Concomitant]
  4. CETIRIZINE (CETIRIZINE) [Concomitant]

REACTIONS (1)
  - Nephrolithiasis [None]
